FAERS Safety Report 7954720-2 (Version None)
Quarter: 2011Q4

REPORT INFORMATION
  Report Type: 
  Country: None (occurrence: None)
  Receive Date: 20111202
  Receipt Date: 20111124
  Transmission Date: 20120403
  Serious: Yes (Other)
  Sender: FDA-Public Use
  Company Number: FR-ROCHE-1016477

PATIENT
  Age: 45 Year
  Sex: Male

DRUGS (1)
  1. XENICAL [Suspect]
     Indication: OBESITY

REACTIONS (2)
  - INSULIN RESISTANCE [None]
  - HEPATIC SIDEROSIS [None]
